FAERS Safety Report 8774357 (Version 2)
Quarter: 2013Q4

REPORT INFORMATION
  Report Type: Spontaneous
  Country: US (occurrence: US)
  Receive Date: 20120907
  Receipt Date: 20131101
  Transmission Date: 20140711
  Serious: No
  Sender: FDA-Public Use
  Company Number: US-009507513-1208USA011223

PATIENT
  Sex: Female

DRUGS (3)
  1. PEG-INTRON [Suspect]
     Indication: HEPATITIS C
     Dosage: UNK
     Dates: start: 20111112
  2. REBETOL [Suspect]
     Indication: HEPATITIS C
     Dosage: UNK
     Dates: start: 20111112
  3. VICTRELIS [Suspect]
     Dosage: UNK
     Dates: start: 20111210

REACTIONS (3)
  - Confusional state [Unknown]
  - Red blood cell count decreased [Unknown]
  - White blood cell count decreased [Unknown]
